FAERS Safety Report 15037490 (Version 1)
Quarter: 2018Q2

REPORT INFORMATION
  Report Type: Spontaneous
  Country: DE (occurrence: DE)
  Receive Date: 20180620
  Receipt Date: 20180620
  Transmission Date: 20180711
  Serious: Yes (Hospitalization)
  Sender: FDA-Public Use
  Company Number: DE-TEVA-2018-DE-911382

PATIENT
  Age: 74 Year
  Sex: Female
  Weight: 87.4 kg

DRUGS (11)
  1. TORASEMID [Suspect]
     Active Substance: TORSEMIDE
     Dosage: 1-0-0-0
  2. LETROZOL [Concomitant]
     Active Substance: LETROZOLE
     Dosage: 0-1-0-0
  3. AMITRIPTYLIN [Concomitant]
     Active Substance: AMITRIPTYLINE
     Dosage: 0-0-0-1
  4. SIMVASTATIN. [Concomitant]
     Active Substance: SIMVASTATIN
     Dosage: 0-0-1-0
  5. NITRENDIPIN [Suspect]
     Active Substance: NITRENDIPINE
     Dosage: 0.5-0-1-0
  6. CANDESARTAN. [Suspect]
     Active Substance: CANDESARTAN
     Dosage: 1-0-0-0
  7. PANTOPRAZOL [Concomitant]
     Active Substance: PANTOPRAZOLE SODIUM
     Dosage: 1-0-0-0
  8. METOPROLOL. [Suspect]
     Active Substance: METOPROLOL
     Dosage: 1-0-1-0
  9. SERTRALINE [Suspect]
     Active Substance: SERTRALINE HYDROCHLORIDE
     Dosage: 1-0-0-0
  10. URAPIDIL [Suspect]
     Active Substance: URAPIDIL
     Dosage: 1-0-1-1
  11. ALLOPURINOL. [Concomitant]
     Active Substance: ALLOPURINOL
     Dosage: 1-0-0-0

REACTIONS (2)
  - Presyncope [Unknown]
  - Bradycardia [Unknown]
